FAERS Safety Report 5573243-1 (Version None)
Quarter: 2007Q4

REPORT INFORMATION
  Report Type: 
  Country: None (occurrence: None)
  Receive Date: 20071220
  Receipt Date: 20071212
  Transmission Date: 20080405
  Serious: Yes (Death)
  Sender: FDA-Public Use
  Company Number: 2007-05694

PATIENT
  Age: 38 Year
  Sex: Female

DRUGS (3)
  1. METRONIDAZOLE [Suspect]
     Indication: OSTEOMYELITIS
     Dosage: 1500 MG, DAILY X 4 WEEKS, INTRAVEOUS; 500 MG, QID X 6 WEEKS, INTRAVENOUS
     Route: 042
  2. VANCOMYCIN [Concomitant]
  3. TEICOPLANIN (TEICOPLANIN) [Concomitant]

REACTIONS (1)
  - TOXIC ENCEPHALOPATHY [None]
